FAERS Safety Report 21851812 (Version 1)
Quarter: 2023Q1

REPORT INFORMATION
  Report Type: Spontaneous
  Country: FR (occurrence: FR)
  Receive Date: 20230112
  Receipt Date: 20230112
  Transmission Date: 20230418
  Serious: Yes (Other)
  Sender: FDA-Public Use
  Company Number: FR-SUN PHARMACEUTICAL INDUSTRIES LTD-2022RR-372877

PATIENT
  Age: 71 Year
  Sex: Female

DRUGS (7)
  1. PEMETREXED [Suspect]
     Active Substance: PEMETREXED
     Indication: Lymphangiosis carcinomatosa
     Dosage: UNK
     Route: 065
  2. CARBOPLATIN [Suspect]
     Active Substance: CARBOPLATIN
     Indication: Lymphangiosis carcinomatosa
     Dosage: UNK
     Route: 065
  3. PACLITAXEL [Suspect]
     Active Substance: PACLITAXEL
     Indication: Lymphangiosis carcinomatosa
     Dosage: UNK
     Route: 065
  4. BEVACIZUMAB [Suspect]
     Active Substance: BEVACIZUMAB
     Indication: Lymphangiosis carcinomatosa
     Dosage: UNK
     Route: 065
  5. CRIZOTINIB [Concomitant]
     Active Substance: CRIZOTINIB
     Indication: Lymphangiosis carcinomatosa
     Dosage: 200 MILLIGRAM, BID
     Route: 065
  6. PRALSETINIB [Concomitant]
     Active Substance: PRALSETINIB
     Indication: Lymphangiosis carcinomatosa
     Dosage: 400 MILLIGRAM, QD
     Route: 065
  7. CAPMATINIB [Concomitant]
     Active Substance: CAPMATINIB
     Indication: Lymphangiosis carcinomatosa
     Dosage: UNK
     Route: 065
     Dates: start: 202106

REACTIONS (2)
  - Therapeutic product effect incomplete [Unknown]
  - Disease progression [Unknown]
